FAERS Safety Report 7473689-0 (Version None)
Quarter: 2011Q1

REPORT INFORMATION
  Report Type: 
  Country: None (occurrence: None)
  Receive Date: 20110302
  Receipt Date: 20100920
  Transmission Date: 20110831
  Serious: Yes (Hospitalization)
  Sender: FDA-Public Use
  Company Number: 163-21880-10070501

PATIENT
  Age: 48 Year
  Sex: Female

DRUGS (7)
  1. NORTRIPTYLINE (NORTRIPTYLINE) [Concomitant]
  2. VALIUM [Concomitant]
  3. LYRICA [Concomitant]
  4. REVLIMID [Suspect]
     Indication: AMYLOIDOSIS
     Dosage: 25 MG, DAILY X 21 DAYS, PO; 25 MG, DAILY X 21 DAYS, PO
     Route: 048
     Dates: start: 20100831
  5. REVLIMID [Suspect]
     Indication: MULTIPLE MYELOMA
     Dosage: 25 MG, DAILY X 21 DAYS, PO; 25 MG, DAILY X 21 DAYS, PO
     Route: 048
     Dates: start: 20100831
  6. REVLIMID [Suspect]
     Indication: AMYLOIDOSIS
     Dosage: 25 MG, DAILY X 21 DAYS, PO; 25 MG, DAILY X 21 DAYS, PO
     Route: 048
     Dates: start: 20100614, end: 20100705
  7. REVLIMID [Suspect]
     Indication: MULTIPLE MYELOMA
     Dosage: 25 MG, DAILY X 21 DAYS, PO; 25 MG, DAILY X 21 DAYS, PO
     Route: 048
     Dates: start: 20100614, end: 20100705

REACTIONS (2)
  - PAIN IN EXTREMITY [None]
  - CARPAL TUNNEL SYNDROME [None]
